FAERS Safety Report 25718316 (Version 1)
Quarter: 2025Q3

REPORT INFORMATION
  Report Type: Spontaneous
  Country: EU (occurrence: EU)
  Receive Date: 20250824
  Receipt Date: 20250824
  Transmission Date: 20251021
  Serious: Yes (Other)
  Sender: AUROBINDO
  Company Number: EU-CADRBFARM-2025337890

PATIENT
  Age: 27 Year
  Sex: Female
  Weight: 72 kg

DRUGS (4)
  1. IBUPROFEN [Suspect]
     Active Substance: IBUPROFEN
     Indication: Febrile infection
     Dosage: 400 MILLIGRAM, 3 TIMES A DAY (3 X 400 MG T?GLICH)
     Route: 048
     Dates: start: 20250719, end: 20250725
  2. IBUPROFEN [Suspect]
     Active Substance: IBUPROFEN
     Indication: Viral infection
  3. IBUPROFEN [Suspect]
     Active Substance: IBUPROFEN
     Indication: Dysphagia
  4. IBUPROFEN [Suspect]
     Active Substance: IBUPROFEN
     Indication: Lymph node pain

REACTIONS (8)
  - Leukopenia [Unknown]
  - Acute generalised exanthematous pustulosis [Unknown]
  - Scab [Unknown]
  - Pustule [Recovered/Resolved]
  - Blister [Recovered/Resolved]
  - Pruritus [Recovered/Resolved]
  - Scratch [Recovered/Resolved]
  - Rash [Recovered/Resolved]

NARRATIVE: CASE EVENT DATE: 20250701
